FAERS Safety Report 14222190 (Version 2)
Quarter: 2018Q1

REPORT INFORMATION
  Report Type: Spontaneous
  Country: JP (occurrence: JP)
  Receive Date: 20171124
  Receipt Date: 20180227
  Transmission Date: 20180508
  Serious: Yes (Hospitalization, Other)
  Sender: FDA-Public Use
  Company Number: JP-BRISTOL-MYERS SQUIBB COMPANY-BMS-2017-106060

PATIENT
  Age: 67 Year
  Sex: Male

DRUGS (1)
  1. OPDIVO [Suspect]
     Active Substance: NIVOLUMAB
     Indication: RENAL CELL CARCINOMA
     Dosage: UNK
     Route: 042
     Dates: start: 20170825

REACTIONS (9)
  - Dyspnoea [Unknown]
  - Anuria [Unknown]
  - Lymphoedema [Unknown]
  - Cellulitis [Unknown]
  - Weight increased [Unknown]
  - Pyrexia [Unknown]
  - Oedema [Unknown]
  - Erythema [Unknown]
  - Skin disorder [Unknown]
